FAERS Safety Report 6725851-X (Version None)
Quarter: 2010Q2

REPORT INFORMATION
  Report Type: 
  Country: None (occurrence: None)
  Receive Date: 20100514
  Receipt Date: 20100505
  Transmission Date: 20101027
  Serious: Yes (Other)
  Sender: FDA-Public Use
  Company Number: US-SANOFI-AVENTIS-2010SA027161

PATIENT
  Sex: Female

DRUGS (3)
  1. LANTUS [Suspect]
     Indication: TYPE 2 DIABETES MELLITUS
     Dosage: 12-13 UNITS
     Route: 058
     Dates: start: 20100201
  2. LANTUS [Suspect]
     Route: 058
     Dates: end: 20100101
  3. OPTICLICK [Suspect]

REACTIONS (1)
  - VASCULAR GRAFT [None]
